FAERS Safety Report 6877445-3 (Version None)
Quarter: 2010Q3

REPORT INFORMATION
  Report Type: 
  Country: None (occurrence: None)
  Receive Date: 20100727
  Receipt Date: 20091217
  Transmission Date: 20110219
  Serious: No
  Sender: FDA-Public Use
  Company Number: US-ABBOTT-09P-163-0615912-00

PATIENT
  Sex: Female
  Weight: 49.94 kg

DRUGS (4)
  1. SYNTHROID [Suspect]
     Indication: THYROIDECTOMY
     Route: 048
  2. MAXZIDE [Concomitant]
     Indication: URINE CALCIUM INCREASED
     Route: 048
  3. LIPITOR [Concomitant]
     Indication: FAMILIAL RISK FACTOR
     Route: 048
  4. FORTEO [Concomitant]
     Indication: OSTEOPOROSIS
     Route: 058

REACTIONS (1)
  - ALOPECIA [None]
